FAERS Safety Report 6607982-8 (Version None)
Quarter: 2010Q1

REPORT INFORMATION
  Report Type: 
  Country: None (occurrence: None)
  Receive Date: 20100301
  Receipt Date: 20100223
  Transmission Date: 20100710
  Serious: Yes (Disabling)
  Sender: FDA-Public Use
  Company Number: US-KINGPHARMUSA00001-K201000202

PATIENT
  Age: 58 Year
  Sex: Female
  Weight: 70.295 kg

DRUGS (5)
  1. CYTOMEL [Suspect]
     Indication: THYROID DISORDER
     Dosage: 25 MCG, QD
     Route: 048
     Dates: start: 20100120, end: 20100201
  2. CYTOMEL [Suspect]
     Dosage: 12.5 MCG, QD
     Route: 048
     Dates: start: 20100202, end: 20100208
  3. SYNTHROID [Suspect]
     Indication: THYROID DISORDER
     Dosage: 88 MCG, QD
     Dates: end: 20100120
  4. SYNTHROID [Suspect]
     Dosage: 50 MCG, QD
     Dates: start: 20100121
  5. PLAQUENIL [Concomitant]
     Indication: RHEUMATOID ARTHRITIS
     Dosage: 200 MG, QD

REACTIONS (8)
  - BLOOD PRESSURE INCREASED [None]
  - DIZZINESS [None]
  - DRY MOUTH [None]
  - DYSARTHRIA [None]
  - FATIGUE [None]
  - FEELING ABNORMAL [None]
  - OVERDOSE [None]
  - TACHYCARDIA [None]
